FAERS Safety Report 6333772-X (Version None)
Quarter: 2009Q3

REPORT INFORMATION
  Report Type: 
  Country: None (occurrence: None)
  Receive Date: 20090829
  Receipt Date: 20090522
  Transmission Date: 20100115
  Serious: No
  Sender: FDA-Public Use
  Company Number: US-ABBOTT-09P-163-0576041-00

PATIENT
  Sex: Male
  Weight: 99.88 kg

DRUGS (7)
  1. SIMCOR [Suspect]
     Indication: BLOOD TRIGLYCERIDES INCREASED
     Dosage: 500MG/20MG
     Route: 048
     Dates: start: 20090501
  2. SIMCOR [Suspect]
     Indication: LOW DENSITY LIPOPROTEIN INCREASED
  3. HYDROCODONE [Concomitant]
     Indication: PAIN
     Dosage: 7.5MG/750MG TWICE DAILY
     Route: 048
  4. ALLOPURINOL [Concomitant]
     Indication: GOUT
     Route: 048
  5. NEXIUM [Concomitant]
     Indication: GASTROOESOPHAGEAL REFLUX DISEASE
     Route: 048
  6. BENICAR [Concomitant]
     Indication: HYPERTENSION
     Route: 048
  7. AMYTRIPTYLINE [Concomitant]
     Indication: PAIN
     Route: 048

REACTIONS (4)
  - FLUSHING [None]
  - INSOMNIA [None]
  - PARAESTHESIA [None]
  - PRURITUS [None]
